FAERS Safety Report 7902807 (Version 6)
Quarter: 2013Q3

REPORT INFORMATION
  Report Type: Spontaneous
  Country: US (occurrence: US)
  Receive Date: 20110418
  Receipt Date: 20130703
  Transmission Date: 20140515
  Serious: Yes (Hospitalization, Other)
  Sender: FDA-Public Use
  Company Number: US-ROCHE-751889

PATIENT
  Sex: Male
  Weight: 74.8 kg

DRUGS (8)
  1. ACCUTANE [Suspect]
     Indication: ACNE
     Route: 048
     Dates: start: 19960427, end: 19960920
  2. BANEX [Concomitant]
     Indication: NASAL CONGESTION
  3. APO-LORAZEPAM [Concomitant]
     Indication: ANXIETY
  4. GUAIFENESIN [Concomitant]
  5. ZOLOFT [Concomitant]
     Indication: DEPRESSION
     Route: 065
  6. CHLORPROMAZINE [Concomitant]
     Indication: ANXIETY
     Route: 065
  7. BACTROBAN [Concomitant]
     Indication: SKIN INFECTION
  8. RITALIN [Concomitant]
     Indication: ATTENTION DEFICIT/HYPERACTIVITY DISORDER

REACTIONS (5)
  - Depression [Unknown]
  - Colitis ulcerative [Unknown]
  - Colitis [Unknown]
  - Proctitis [Unknown]
  - Anxiety [Unknown]
